FAERS Safety Report 13265817 (Version 1)
Quarter: 2017Q1

REPORT INFORMATION
  Report Type: Spontaneous
  Country: US (occurrence: US)
  Receive Date: 20170223
  Receipt Date: 20170223
  Transmission Date: 20170428
  Serious: No
  Sender: FDA-Public Use
  Company Number: US-MYLANLABS-2016M1005429

PATIENT
  Sex: Male

DRUGS (1)
  1. VANCOMYCIN MYLAN [Suspect]
     Active Substance: VANCOMYCIN
     Indication: OSTEOMYELITIS
     Dosage: 1750 MG, Q8H, INFUSED OVER 2 HOURS
     Route: 042

REACTIONS (4)
  - Nausea [Unknown]
  - Blood glucose increased [Unknown]
  - Pain in extremity [Unknown]
  - Erythema [Unknown]
